FAERS Safety Report 6137915-2 (Version None)
Quarter: 2009Q1

REPORT INFORMATION
  Report Type: 
  Country: None (occurrence: None)
  Receive Date: 20090331
  Receipt Date: 20090324
  Transmission Date: 20090719
  Serious: Yes (Other)
  Sender: FDA-Public Use
  Company Number: BR-ASTRAZENECA-2009UW07611

PATIENT
  Age: 42 Year
  Sex: Male

DRUGS (5)
  1. CRESTOR [Suspect]
     Indication: DYSLIPIDAEMIA
     Route: 048
     Dates: start: 20070301
  2. ATAZANAVIR SULFATE [Concomitant]
     Indication: HIV TEST POSITIVE
     Route: 048
     Dates: start: 19960101
  3. BIOVIR [Concomitant]
     Indication: HIV TEST POSITIVE
     Dates: start: 19960101
  4. FLUOXETINE [Concomitant]
     Indication: ANXIETY
  5. CLONAZEPAM [Concomitant]
     Indication: INSOMNIA
     Dosage: 10 DROPS/DAY

REACTIONS (4)
  - BACK PAIN [None]
  - BLOOD CREATINE PHOSPHOKINASE INCREASED [None]
  - LIPODYSTROPHY ACQUIRED [None]
  - PAIN IN EXTREMITY [None]
